FAERS Safety Report 12698609 (Version 1)
Quarter: 2016Q3

REPORT INFORMATION
  Report Type: Spontaneous
  Country: SA (occurrence: SA)
  Receive Date: 20160830
  Receipt Date: 20160830
  Transmission Date: 20161109
  Serious: Yes (Death)
  Sender: FDA-Public Use
  Company Number: SA-WEST-WARD PHARMACEUTICALS CORP.-SA-H14001-16-01670

PATIENT
  Age: 41 Year
  Sex: Male

DRUGS (2)
  1. CEFAXONE [Suspect]
     Active Substance: CEFTRIAXONE
     Indication: URINARY TRACT INFECTION
     Route: 042
  2. LACTATED RINGERS [Concomitant]
     Active Substance: CALCIUM CHLORIDE\POTASSIUM CHLORIDE\SODIUM CHLORIDE\SODIUM LACTATE
     Indication: PRODUCT USED FOR UNKNOWN INDICATION
     Route: 065

REACTIONS (4)
  - Vomiting [Fatal]
  - Shock [Fatal]
  - Pruritus [Fatal]
  - Hypersensitivity [Fatal]
